FAERS Safety Report 4469240-X (Version None)
Quarter: 2004Q4

REPORT INFORMATION
  Report Type: 
  Country: None (occurrence: None)
  Receive Date: 20041008
  Receipt Date: 20040929
  Transmission Date: 20050328
  Serious: Yes (Other)
  Sender: FDA-Public Use
  Company Number: PHEH2004US10577

PATIENT
  Sex: Male

DRUGS (1)
  1. STARLIX [Suspect]
     Route: 048

REACTIONS (3)
  - DECREASED APPETITE [None]
  - DIALYSIS [None]
  - WEIGHT DECREASED [None]
